FAERS Safety Report 24911540 (Version 2)
Quarter: 2025Q1

REPORT INFORMATION
  Report Type: Spontaneous
  Country: US (occurrence: US)
  Receive Date: 20250131
  Receipt Date: 20250224
  Transmission Date: 20250409
  Serious: Yes (Other)
  Sender: ALEXION PHARMACEUTICALS
  Company Number: US-AstraZeneca-CH-00793399A

PATIENT

DRUGS (1)
  1. SOLIRIS [Suspect]
     Active Substance: ECULIZUMAB
     Route: 065

REACTIONS (11)
  - Blindness unilateral [Unknown]
  - Glaucoma [Unknown]
  - Macular degeneration [Unknown]
  - Cerebrovascular accident [Unknown]
  - Diverticulitis [Unknown]
  - Blood pressure abnormal [Unknown]
  - Fall [Unknown]
  - Platelet count decreased [Unknown]
  - Confusional state [Unknown]
  - Dysphagia [Recovered/Resolved]
  - Eyelid ptosis [Recovered/Resolved]
